FAERS Safety Report 5612190-3 (Version None)
Quarter: 2008Q1

REPORT INFORMATION
  Report Type: 
  Country: None (occurrence: None)
  Receive Date: 20080131
  Receipt Date: 20080131
  Transmission Date: 20080703
  Serious: Yes (Other)
  Sender: FDA-Public Use
  Company Number: None

PATIENT
  Sex: Male
  Weight: 68.0396 kg

DRUGS (2)
  1. ABREVA [Suspect]
     Indication: ORAL HERPES
     Dates: start: 20080127, end: 20080130
  2. ABREVA [Suspect]
     Indication: ORAL HERPES
     Dates: start: 20080130, end: 20080130

REACTIONS (3)
  - APPLICATION SITE PAIN [None]
  - OEDEMA MOUTH [None]
  - SWELLING FACE [None]
